FAERS Safety Report 21528846 (Version 1)
Quarter: 2022Q4

REPORT INFORMATION
  Report Type: Spontaneous
  Country: CN (occurrence: CN)
  Receive Date: 20221031
  Receipt Date: 20221031
  Transmission Date: 20230113
  Serious: Yes (Hospitalization)
  Sender: FDA-Public Use
  Company Number: CN-MYLANLABS-2022M1118256

PATIENT
  Age: 70 Year
  Sex: Male

DRUGS (2)
  1. LIPITOR [Suspect]
     Active Substance: ATORVASTATIN CALCIUM
     Indication: Hypercholesterolaemia
     Dosage: 10 MILLIGRAM, QD (
     Route: 048
     Dates: start: 20221006, end: 20221006
  2. CAPTOPRIL [Concomitant]
     Active Substance: CAPTOPRIL
     Indication: Hypertension
     Dosage: 5 MILLIGRAM, QD
     Route: 048
     Dates: start: 20221006, end: 20221006

REACTIONS (1)
  - Jaundice [Recovering/Resolving]

NARRATIVE: CASE EVENT DATE: 20221010
